FAERS Safety Report 8919833 (Version 3)
Quarter: 2014Q1

REPORT INFORMATION
  Report Type: Spontaneous
  Country: US (occurrence: US)
  Receive Date: 20121121
  Receipt Date: 20140318
  Transmission Date: 20141002
  Serious: Yes (Hospitalization)
  Sender: FDA-Public Use
  Company Number: US-BAYER-2012-119972

PATIENT
  Age: 20 Year
  Sex: Female

DRUGS (4)
  1. OCELLA [Suspect]
     Dosage: UNK
     Dates: start: 200809, end: 200901
  2. BACTRIM [Concomitant]
     Dosage: 500 MG, BID
     Dates: start: 20090501
  3. CIPROFLOXACIN [Concomitant]
     Dosage: 500 MG, BID
     Dates: start: 20090501
  4. VITAMIN B12 [Concomitant]
     Dosage: UNK
     Dates: start: 20090501

REACTIONS (9)
  - Cholecystectomy [None]
  - Cholecystitis chronic [None]
  - Pain [None]
  - Injury [None]
  - General physical health deterioration [None]
  - Emotional distress [None]
  - Anxiety [None]
  - Anhedonia [None]
  - Pain [None]
